FAERS Safety Report 5759214-0 (Version None)
Quarter: 2008Q2

REPORT INFORMATION
  Report Type: 
  Country: None (occurrence: None)
  Receive Date: 20080604
  Receipt Date: 20080526
  Transmission Date: 20081010
  Serious: Yes (Hospitalization, Other)
  Sender: FDA-Public Use
  Company Number: JP-PFIZER INC-2008043483

PATIENT
  Sex: Female

DRUGS (5)
  1. SULPERAZON [Suspect]
     Indication: CHOLANGITIS
     Route: 042
     Dates: start: 20080424, end: 20080430
  2. SULPERAZON [Suspect]
     Indication: CHOLECYSTITIS
  3. FAMOTIDINE [Suspect]
     Indication: STRESS ULCER
     Route: 042
     Dates: start: 20080424, end: 20080430
  4. AMICALIQ [Concomitant]
     Route: 042
  5. VITAMIN B COMPLEX CAP [Concomitant]

REACTIONS (1)
  - PLATELET COUNT DECREASED [None]
